FAERS Safety Report 21572862 (Version 3)
Quarter: 2024Q1

REPORT INFORMATION
  Report Type: Spontaneous
  Country: US (occurrence: US)
  Receive Date: 20221109
  Receipt Date: 20240125
  Transmission Date: 20240410
  Serious: No
  Sender: FDA-Public Use
  Company Number: US-PFIZER INC-202201283703

PATIENT
  Age: 54 Year
  Sex: Female

DRUGS (1)
  1. XELJANZ XR [Suspect]
     Active Substance: TOFACITINIB CITRATE
     Dosage: 11 MG, DAILY
     Route: 048
     Dates: start: 201911

REACTIONS (5)
  - Condition aggravated [Recovered/Resolved]
  - Pain in extremity [Recovered/Resolved]
  - Thinking abnormal [Unknown]
  - Illness [Unknown]
  - COVID-19 [Unknown]

NARRATIVE: CASE EVENT DATE: 20221104
